FAERS Safety Report 17894008 (Version 2)
Quarter: 2020Q3

REPORT INFORMATION
  Report Type: Report from Study
  Country: BE (occurrence: BE)
  Receive Date: 20200615
  Receipt Date: 20200810
  Transmission Date: 20201103
  Serious: Yes (Hospitalization)
  Sender: FDA-Public Use
  Company Number: BE-INTERCEPT-PM2020001253

PATIENT
  Age: 73 Year
  Sex: Male

DRUGS (3)
  1. OBETICHOLIC ACID [Suspect]
     Active Substance: OBETICHOLIC ACID
     Indication: PRIMARY BILIARY CHOLANGITIS
     Dosage: 5 MG, QD
     Route: 048
     Dates: start: 20120619
  2. EULITOP                            /00022701/ [Concomitant]
     Active Substance: ETHINYL ESTRADIOL\LEVONORGESTREL
     Indication: PRIMARY BILIARY CHOLANGITIS
     Dosage: UNK
     Dates: start: 20180627
  3. URSODEOXYCHOLIC ACID [Concomitant]
     Active Substance: URSODIOL
     Dosage: 500 MG, BID

REACTIONS (4)
  - Blood bilirubin abnormal [Unknown]
  - Abdominal pain upper [Recovered/Resolved]
  - Obstructive pancreatitis [Recovered/Resolved]
  - Cholelithiasis [Recovered/Resolved]

NARRATIVE: CASE EVENT DATE: 20200531
